FAERS Safety Report 11071255 (Version 1)
Quarter: 2015Q2

REPORT INFORMATION
  Report Type: Spontaneous
  Country: US (occurrence: None)
  Receive Date: 20150427
  Receipt Date: 20150427
  Transmission Date: 20150821
  Serious: No
  Sender: FDA-Public Use
  Company Number: None

PATIENT

DRUGS (3)
  1. IBUPROFEN. [Concomitant]
     Active Substance: IBUPROFEN
  2. RIBASPHERE [Suspect]
     Active Substance: RIBAVIRIN
     Indication: DRUG THERAPY
     Route: 048
     Dates: start: 20150402
  3. SOVALDI [Suspect]
     Active Substance: SOFOSBUVIR
     Indication: DRUG THERAPY
     Route: 048
     Dates: start: 20150402

REACTIONS (5)
  - Decreased appetite [None]
  - Diarrhoea [None]
  - Fatigue [None]
  - Nausea [None]
  - Insomnia [None]
